FAERS Safety Report 9357423 (Version 4)
Quarter: 2013Q3

REPORT INFORMATION
  Report Type: Spontaneous
  Country: US (occurrence: US)
  Receive Date: 20130620
  Receipt Date: 20130719
  Transmission Date: 20140515
  Serious: Yes (Hospitalization, Other)
  Sender: FDA-Public Use
  Company Number: US-JNJFOC-20130607743

PATIENT
  Sex: Female
  Weight: 59.88 kg

DRUGS (8)
  1. XARELTO [Suspect]
     Indication: CEREBROVASCULAR ACCIDENT PROPHYLAXIS
     Dosage: AT 9:00 PM
     Route: 048
     Dates: start: 20130410, end: 20130606
  2. XARELTO [Suspect]
     Indication: ATRIAL FIBRILLATION
     Dosage: AT 9:00 PM
     Route: 048
     Dates: start: 20130410, end: 20130606
  3. MULTAQ [Concomitant]
     Route: 048
  4. DILTIAZEM [Concomitant]
     Route: 048
  5. PROTONIX [Concomitant]
     Route: 048
  6. SIMVASTATIN [Concomitant]
     Route: 048
  7. SYNTHROID [Concomitant]
     Route: 048
  8. PAXIL [Concomitant]
     Route: 048

REACTIONS (2)
  - Haemoglobin decreased [Recovering/Resolving]
  - Upper gastrointestinal haemorrhage [Recovered/Resolved]
